FAERS Safety Report 20233016 (Version 1)
Quarter: 2021Q4

REPORT INFORMATION
  Report Type: Spontaneous
  Country: US (occurrence: None)
  Receive Date: 20211225
  Receipt Date: 20211225
  Transmission Date: 20220303
  Serious: Yes (Life-Threatening, Hospitalization, Disabling)
  Sender: FDA-Public Use
  Company Number: None

PATIENT
  Age: 50 Year
  Sex: Female
  Weight: 55.8 kg

DRUGS (1)
  1. MAYZENT [Suspect]
     Active Substance: SIPONIMOD
     Indication: Relapsing multiple sclerosis
     Dosage: FREQUENCY : DAILY;?
     Route: 048

REACTIONS (23)
  - Muscular weakness [None]
  - Fall [None]
  - Headache [None]
  - Back pain [None]
  - Asthenia [None]
  - Hypoaesthesia [None]
  - Diplegia [None]
  - Nervousness [None]
  - Confusional state [None]
  - Cerebral artery embolism [None]
  - Constipation [None]
  - Hypertension [None]
  - Heart rate increased [None]
  - Cardiac arrest [None]
  - Choking [None]
  - Aspiration [None]
  - Systemic mycosis [None]
  - Product dose omission issue [None]
  - Spinal disorder [None]
  - Embolism [None]
  - Anxiety [None]
  - Product availability issue [None]
  - Monoplegia [None]

NARRATIVE: CASE EVENT DATE: 20211124
